FAERS Safety Report 23363118 (Version 1)
Quarter: 2024Q1

REPORT INFORMATION
  Report Type: Spontaneous
  Country: US (occurrence: None)
  Receive Date: 20240103
  Receipt Date: 20240103
  Transmission Date: 20240410
  Serious: Yes (Other)
  Sender: FDA-Public Use
  Company Number: None

PATIENT
  Age: 42 Year
  Sex: Female
  Weight: 65.4 kg

DRUGS (4)
  1. OXALIPLATIN [Suspect]
     Active Substance: OXALIPLATIN
     Indication: Colorectal cancer
     Dosage: OTHER FREQUENCY : ONCE EVERY 21 DAYS;?
     Route: 042
     Dates: start: 20231205, end: 20231205
  2. OXALIPLATIN [Suspect]
     Active Substance: OXALIPLATIN
     Indication: Colorectal cancer
     Dosage: OTHER FREQUENCY : ONCE EVERY 21 DAYS;?
     Route: 042
     Dates: end: 20240102
  3. OXALIPLATIN [Concomitant]
     Active Substance: OXALIPLATIN
     Dates: start: 20231205, end: 20231205
  4. OXALIPLATIN [Concomitant]
     Active Substance: OXALIPLATIN
     Dates: end: 20240102

REACTIONS (9)
  - Dysarthria [None]
  - Dysphonia [None]
  - Muscle spasms [None]
  - Hypersensitivity [None]
  - Throat tightness [None]
  - Paraesthesia oral [None]
  - Nausea [None]
  - Paranasal sinus discomfort [None]
  - Infusion related reaction [None]

NARRATIVE: CASE EVENT DATE: 20231205
